FAERS Safety Report 8479091-7 (Version None)
Quarter: 2012Q2

REPORT INFORMATION
  Report Type: 
  Country: None (occurrence: None)
  Receive Date: 20120629
  Receipt Date: 20120618
  Transmission Date: 20120825
  Serious: Yes (Other)
  Sender: FDA-Public Use
  Company Number: US-BRISTOL-MYERS SQUIBB COMPANY-16695587

PATIENT
  Age: 24 Year
  Sex: Female

DRUGS (6)
  1. ETOPOSIDE [Suspect]
     Indication: OVARIAN CANCER
     Dosage: OVER 2 HRS ON DAY 3
     Route: 042
  2. DOXORUBICIN HCL [Suspect]
     Indication: OVARIAN CANCER
     Dosage: OVER 30 MIN ON DAY3
     Route: 042
  3. BLEOMYCIN SULFATE [Suspect]
     Indication: OVARIAN CANCER
     Dosage: 1DF=15 UNITS/M2 OVER 24 HRS ON DAY 2
     Route: 042
  4. VINBLASTINE SULFATE [Suspect]
     Indication: OVARIAN CANCER
     Dosage: OVER 30 MIN ON DAY 1
     Route: 042
  5. CISPLATIN [Suspect]
     Indication: OVARIAN CANCER
     Dosage: OVER 4 HRS ON DAY 1
     Route: 042
  6. CYCLOPHOSPHAMIDE [Suspect]
     Indication: OVARIAN CANCER
     Dosage: OVER 60 MIN ON DAY 2
     Route: 042

REACTIONS (3)
  - CELLULITIS [None]
  - PANCYTOPENIA [None]
  - MUCOSAL INFLAMMATION [None]
